FAERS Safety Report 9196220 (Version 1)
Quarter: 2013Q1

REPORT INFORMATION
  Report Type: Spontaneous
  Country: JP (occurrence: JP)
  Receive Date: 20130328
  Receipt Date: 20130328
  Transmission Date: 20140127
  Serious: Yes (Congenital Anomaly)
  Sender: FDA-Public Use
  Company Number: JP-JNJFOC-20130316677

PATIENT
  Sex: 0

DRUGS (1)
  1. ORTHO EVRA [Suspect]
     Indication: FOETAL EXPOSURE DURING PREGNANCY
     Route: 064
     Dates: start: 20130120, end: 20130210

REACTIONS (1)
  - Foetal heart rate abnormal [Unknown]
